FAERS Safety Report 6179178-8 (Version None)
Quarter: 2009Q2

REPORT INFORMATION
  Report Type: 
  Country: None (occurrence: None)
  Receive Date: 20090505
  Receipt Date: 20090427
  Transmission Date: 20091009
  Serious: Yes (Other)
  Sender: FDA-Public Use
  Company Number: US-BAYER-200912095NA

PATIENT
  Age: 57 Year
  Sex: Female
  Weight: 68 kg

DRUGS (3)
  1. MIRENA [Suspect]
     Indication: ENDOMETRIAL HYPERPLASIA
     Dosage: CONTINUOUS DELIVERY
     Route: 015
     Dates: start: 20080908
  2. ESTRADIOL [Concomitant]
     Indication: OVARIAN FAILURE
     Route: 048
  3. SYNTHROID [Concomitant]
     Indication: HYPOTHYROIDISM
     Route: 048

REACTIONS (1)
  - ANORGASMIA [None]
